FAERS Safety Report 5975625-2 (Version None)
Quarter: 2008Q4

REPORT INFORMATION
  Report Type: 
  Country: None (occurrence: None)
  Receive Date: 20081128
  Receipt Date: 20081114
  Transmission Date: 20090506
  Serious: Yes (Death)
  Sender: FDA-Public Use
  Company Number: 002#1#2008-00445

PATIENT
  Age: 86 Year
  Sex: Male
  Weight: 76.2043 kg

DRUGS (13)
  1. NEUPRO [Suspect]
     Indication: PARKINSON'S DISEASE
     Dosage: 6MG/24H, 1 IN 1 D, TRANSDERMAL; 4MG/24H, 1 IN 1 TRANSDERMAL
     Route: 062
     Dates: end: 20080423
  2. EXEL [Concomitant]
  3. LEXAPRO [Concomitant]
  4. PROAMATINE [Concomitant]
  5. SEROQUEL [Concomitant]
  6. NAMENDA [Concomitant]
  7. CRESTOR [Concomitant]
  8. LANTUS [Concomitant]
  9. FLOMAX [Concomitant]
  10. DUETACT [Concomitant]
  11. ASPIRIN [Concomitant]
  12. REGULAR INSULIN [Concomitant]
  13. ALLOPURINOL [Concomitant]

REACTIONS (11)
  - CARDIAC DISORDER [None]
  - CONFUSIONAL STATE [None]
  - DIABETES MELLITUS [None]
  - DIALYSIS [None]
  - DISEASE RECURRENCE [None]
  - LYMPHOMA [None]
  - ORGAN FAILURE [None]
  - PLATELET COUNT DECREASED [None]
  - PNEUMONIA ASPIRATION [None]
  - PSYCHOTIC DISORDER [None]
  - RENAL FAILURE ACUTE [None]
